FAERS Safety Report 7590418-0 (Version None)
Quarter: 2011Q3

REPORT INFORMATION
  Report Type: 
  Country: None (occurrence: None)
  Receive Date: 20110705
  Receipt Date: 20091210
  Transmission Date: 20111222
  Serious: Yes (Death, Hospitalization, Other)
  Sender: FDA-Public Use
  Company Number: US-BAYER-200942995NA

PATIENT
  Age: 62 Year
  Sex: Male
  Weight: 63 kg

DRUGS (36)
  1. CLOPIDOGREL [Concomitant]
     Dosage: UNK
     Dates: start: 20040601
  2. FUROSEMIDE [Concomitant]
     Dosage: 80 MG, QD
     Dates: start: 20040601
  3. PHENOBARBITAL TAB [Concomitant]
     Dosage: UNK
     Dates: start: 20041004
  4. PREDNISONE [Concomitant]
     Dosage: UNK
     Dates: start: 20040901
  5. PHENYLEPHRINE HCL [Concomitant]
     Dosage: UNK
     Dates: start: 20041005
  6. ALTACE [Concomitant]
     Dosage: 2.5 MG, QD
     Dates: start: 20040601
  7. DIGOXIN [Concomitant]
     Dosage: 0.25 MG, QD
     Dates: start: 20040601
  8. TRASYLOL [Suspect]
     Indication: PRODUCT USED FOR UNKNOWN INDICATION
     Dosage: 1 ML, ONCE
     Route: 042
     Dates: start: 20041005, end: 20041005
  9. TRASYLOL [Suspect]
     Dosage: 50ML/HR INFUSION
     Route: 042
     Dates: start: 20041005, end: 20041005
  10. CARVEDILOL [Concomitant]
     Dosage: 6.25 TWICE DAILY
     Dates: start: 20040601
  11. DOBUTAMINE HCL [Concomitant]
     Dosage: UNK
     Dates: start: 20040601
  12. HEPARIN [Concomitant]
     Dosage: UNK
     Dates: start: 20040601
  13. MIDAZOLAM HCL [Concomitant]
     Dosage: TOTAL 5
     Dates: start: 20041005
  14. SUCCINYLCHOLINE CHLORIDE [Concomitant]
     Dosage: 100
     Dates: start: 20041005
  15. PROPOFOL [Concomitant]
     Dosage: UNK
     Dates: start: 20041005
  16. COUMADIN [Concomitant]
     Dosage: UNK
     Dates: start: 20040601
  17. HEPARIN [Concomitant]
     Dosage: 10000 UNITS
     Dates: start: 20041005
  18. SODIUM NITROPRUSSIDE [Concomitant]
     Dosage: UNK
     Dates: start: 20040920
  19. ZANTAC [Concomitant]
     Dosage: 75 MG, TID
     Dates: start: 20040601
  20. DOBUTAMINE HCL [Concomitant]
     Dosage: UNK
     Dates: start: 20041005
  21. TRASYLOL [Suspect]
     Dosage: 200ML OF LOADING DOSE
     Route: 042
     Dates: start: 20041005, end: 20041005
  22. TRAZODONE HCL [Concomitant]
     Dosage: 100 MG AT BEDTIME
     Dates: start: 20040601
  23. INSULIN [Concomitant]
     Dosage: UNK
     Dates: start: 20041005
  24. FENTANYL [Concomitant]
     Dosage: TOTAL 1000
     Dates: start: 20041005
  25. ACETYLSALICYLIC ACID SRT [Concomitant]
     Dosage: UNK
     Dates: start: 20040601
  26. MIDAZOLAM HCL [Concomitant]
     Dosage: UNK
     Dates: start: 20040601
  27. TRASYLOL [Suspect]
     Indication: MITRAL VALVE REPAIR
     Dosage: 100 ML PRIME
     Route: 042
     Dates: start: 20041005, end: 20041005
  28. ALDACTONE [Concomitant]
     Dosage: 25 MG, QD
     Dates: start: 20040601
  29. HEPARIN [Concomitant]
     Dosage: 30000 U
     Dates: start: 20041005
  30. HEPARIN [Concomitant]
     Dosage: 50000 UNITS
     Dates: start: 20041005
  31. NORVASC [Concomitant]
     Dosage: 10 MG, QD
  32. PLAVIX [Concomitant]
     Dosage: 75 DAILY
     Dates: start: 20040601
  33. LASIX [Concomitant]
     Dosage: 40 MG
     Dates: start: 20041005
  34. RED BLOOD CELLS [Concomitant]
     Dosage: 3 U, ONCE
     Route: 042
  35. COREG [Concomitant]
     Dosage: UNK
     Dates: start: 20040928
  36. LISINOPRIL [Concomitant]
     Dosage: UNK
     Dates: start: 20040901

REACTIONS (12)
  - RENAL IMPAIRMENT [None]
  - STRESS [None]
  - ANHEDONIA [None]
  - RENAL FAILURE [None]
  - INJURY [None]
  - ISCHAEMIC CARDIOMYOPATHY [None]
  - EMOTIONAL DISTRESS [None]
  - ANXIETY [None]
  - FEAR [None]
  - RENAL INJURY [None]
  - UNEVALUABLE EVENT [None]
  - PAIN [None]
